FAERS Safety Report 12864574 (Version 5)
Quarter: 2017Q1

REPORT INFORMATION
  Report Type: Spontaneous
  Country: FR (occurrence: FR)
  Receive Date: 20161020
  Receipt Date: 20170321
  Transmission Date: 20170428
  Serious: Yes (Hospitalization, Other)
  Sender: FDA-Public Use
  Company Number: FR-ASTRAZENECA-2016SF09011

PATIENT
  Age: 21140 Day
  Sex: Female
  Weight: 59 kg

DRUGS (7)
  1. METOCLOPRAMIDE. [Concomitant]
     Active Substance: METOCLOPRAMIDE
  2. LYNPARZA [Suspect]
     Active Substance: OLAPARIB
     Indication: OVARIAN EPITHELIAL CANCER
     Route: 048
     Dates: start: 20160609, end: 20160926
  3. DOLIPRANE [Concomitant]
     Active Substance: ACETAMINOPHEN
     Dosage: 1 G AT MAXIMUM 4 TIMES A DAY
  4. LASILIX [Concomitant]
     Active Substance: FUROSEMIDE
     Dates: end: 20160909
  5. XANAX [Concomitant]
     Active Substance: ALPRAZOLAM
     Dosage: 0.25 MG AT 0.125 MG IN THE MORNING AND 0.125 MG IN THE EVENING
  6. OXYCONTIN [Concomitant]
     Active Substance: OXYCODONE HYDROCHLORIDE
     Dosage: 5 MG IN THE EVENING
  7. IMODIUM [Concomitant]
     Active Substance: LOPERAMIDE HYDROCHLORIDE

REACTIONS (7)
  - Arthralgia [Unknown]
  - Pyrexia [Unknown]
  - Myalgia [Unknown]
  - Bone marrow failure [Not Recovered/Not Resolved]
  - Carbohydrate antigen 125 increased [Unknown]
  - Bicytopenia [Unknown]
  - Thrombocytopenia [Not Recovered/Not Resolved]

NARRATIVE: CASE EVENT DATE: 20160831
